FAERS Safety Report 21326732 (Version 1)
Quarter: 2022Q3

REPORT INFORMATION
  Report Type: Other
  Country: QA (occurrence: None)
  Receive Date: 20220913
  Receipt Date: 20220913
  Transmission Date: 20221026
  Serious: Yes (Hospitalization)
  Sender: FDA-Public Use
  Company Number: QA-ROCHE-3177883

PATIENT
  Age: 71 Year
  Sex: Male

DRUGS (13)
  1. MYCOPHENOLATE MOFETIL [Suspect]
     Active Substance: MYCOPHENOLATE MOFETIL
     Indication: IgA nephropathy
     Dosage: MORE THAN 4 YEARS
     Route: 065
  2. METFORMIN [Concomitant]
     Active Substance: METFORMIN HYDROCHLORIDE
  3. BENSERAZIDE\LEVODOPA [Concomitant]
     Active Substance: BENSERAZIDE\LEVODOPA
  4. INSULIN GLARGINE [Concomitant]
     Active Substance: INSULIN GLARGINE
  5. SITAGLIPTIN [Concomitant]
     Active Substance: SITAGLIPTIN
  6. EMPAGLIFLOZIN [Concomitant]
     Active Substance: EMPAGLIFLOZIN
  7. RAMIPRIL [Concomitant]
     Active Substance: RAMIPRIL
  8. CARBIDOPA [Concomitant]
     Active Substance: CARBIDOPA
  9. ASPIRIN [Concomitant]
     Active Substance: ASPIRIN
  10. ATORVASTATIN [Concomitant]
     Active Substance: ATORVASTATIN
  11. IRON [Concomitant]
     Active Substance: IRON
     Indication: Anaemia
  12. PIPERACILLIN AND TAZOBACTAM [Concomitant]
     Active Substance: PIPERACILLIN SODIUM\TAZOBACTAM SODIUM
  13. MEROPENEM [Concomitant]
     Active Substance: MEROPENEM

REACTIONS (2)
  - Bacteraemia [Recovered/Resolved]
  - Haemorrhage intracranial [Recovered/Resolved]
